FAERS Safety Report 9164510 (Version 2)
Quarter: 2013Q1

REPORT INFORMATION
  Report Type: Spontaneous
  Country: FR (occurrence: FR)
  Receive Date: 20130315
  Receipt Date: 20130325
  Transmission Date: 20140127
  Serious: Yes (Hospitalization, Other)
  Sender: FDA-Public Use
  Company Number: PHHY2013FR006900

PATIENT
  Age: 6 Year
  Sex: Male

DRUGS (6)
  1. GLIVEC [Suspect]
     Indication: ACUTE MYELOID LEUKAEMIA
     Dosage: 300 MG/M2, ALTERNATELY INTAKE OF 200 AND 300 MG PER DAY
     Route: 048
     Dates: start: 20111012, end: 20121228
  2. BACTRIM [Concomitant]
     Indication: ANTIFUNGAL PROPHYLAXIS
     Dosage: 400 MG, 3 TIMES PER WEEK
     Route: 048
     Dates: start: 20120713
  3. KEPPRA [Concomitant]
     Indication: STATUS EPILEPTICUS
     Dosage: 400 MG, BID
     Dates: start: 201202
  4. ZOVIRAX [Concomitant]
     Indication: HERPES SIMPLEX
     Dosage: 5 ML, BID
     Route: 048
     Dates: start: 201206
  5. ORACILLINE [Concomitant]
     Indication: ANTIBIOTIC PROPHYLAXIS
     Dosage: 1 MIU, TWICE DAILY (4 DAYS ON 7)
     Route: 048
     Dates: start: 20120619
  6. MOPRAL [Concomitant]
     Indication: STRESS ULCER
     Dosage: 20 MG, QD
     Dates: start: 201206

REACTIONS (11)
  - Polymyositis [Recovering/Resolving]
  - Gait disturbance [Recovering/Resolving]
  - Asthenia [Recovering/Resolving]
  - Blood creatine phosphokinase increased [Unknown]
  - Muscle swelling [Recovering/Resolving]
  - Muscle disorder [Recovering/Resolving]
  - Musculoskeletal stiffness [Recovering/Resolving]
  - Myalgia [Recovering/Resolving]
  - Muscular weakness [Recovering/Resolving]
  - Fatigue [Recovering/Resolving]
  - Pyrexia [Recovering/Resolving]
